FAERS Safety Report 15880209 (Version 1)
Quarter: 2019Q1

REPORT INFORMATION
  Report Type: Spontaneous
  Country: JP (occurrence: JP)
  Receive Date: 20190128
  Receipt Date: 20190128
  Transmission Date: 20190417
  Serious: Yes (Disabling, Other)
  Sender: FDA-Public Use
  Company Number: JP-PFIZER INC-2018427299

PATIENT
  Age: 54 Year
  Sex: Male
  Weight: 74.4 kg

DRUGS (3)
  1. CHAMPIX 0.5MG [Interacting]
     Active Substance: VARENICLINE TARTRATE
     Dosage: 1 MG, 2X/DAY
     Route: 048
     Dates: start: 20181011, end: 20181227
  2. CHAMPIX 0.5MG [Suspect]
     Active Substance: VARENICLINE TARTRATE
     Indication: NICOTINE DEPENDENCE
     Dosage: 0.5 MG, 1X/DAY
     Route: 048
     Dates: start: 20181004, end: 20181006
  3. CHAMPIX 0.5MG [Interacting]
     Active Substance: VARENICLINE TARTRATE
     Dosage: 0.5 MG, 2X/DAY
     Route: 048
     Dates: start: 20181007, end: 20181010

REACTIONS (4)
  - Vomiting [Recovered/Resolved]
  - Alcohol interaction [Recovered/Resolved]
  - Altered state of consciousness [Recovered/Resolved]
  - Memory impairment [Recovered/Resolved]

NARRATIVE: CASE EVENT DATE: 20181007
